FAERS Safety Report 7409066-8 (Version None)
Quarter: 2011Q2

REPORT INFORMATION
  Report Type: 
  Country: None (occurrence: None)
  Receive Date: 20110412
  Receipt Date: 20110406
  Transmission Date: 20111010
  Serious: Yes (Other)
  Sender: FDA-Public Use
  Company Number: AU-PFIZER INC-2011076764

PATIENT

DRUGS (1)
  1. SALAZOPYRIN [Suspect]

REACTIONS (1)
  - PSYCHOTIC DISORDER [None]
